FAERS Safety Report 9448984 (Version 2)
Quarter: 2015Q1

REPORT INFORMATION
  Report Type: Spontaneous
  Country: DK (occurrence: DK)
  Receive Date: 20130808
  Receipt Date: 20150314
  Transmission Date: 20150721
  Serious: Yes (Other)
  Sender: FDA-Public Use
  Company Number: DK-009507513-1307DNK016370

PATIENT
  Age: 23 Year
  Sex: Female

DRUGS (1)
  1. NUVARING [Suspect]
     Active Substance: ETHINYL ESTRADIOL\ETONOGESTREL
     Dosage: DOSIS: KONTINUERT I 3 ^CYKLI^, STYRKE: 120+15 MIKG/24 TIMER
     Route: 067
     Dates: start: 20130405, end: 20130607

REACTIONS (2)
  - Nausea [Recovered/Resolved]
  - Pregnancy with contraceptive device [Not Recovered/Not Resolved]

NARRATIVE: CASE EVENT DATE: 20130601
